FAERS Safety Report 5775035-7 (Version None)
Quarter: 2008Q2

REPORT INFORMATION
  Report Type: 
  Country: None (occurrence: None)
  Receive Date: 20080617
  Receipt Date: 20080611
  Transmission Date: 20081010
  Serious: Yes (Other)
  Sender: FDA-Public Use
  Company Number: US-ASTRAZENECA-2008UW10862

PATIENT
  Age: 33 Year
  Sex: Male

DRUGS (3)
  1. SEROQUEL [Suspect]
     Indication: SLEEP DISORDER
     Dosage: }200 MG
     Route: 048
     Dates: start: 20040101, end: 20060101
  2. RISPERDAL [Concomitant]
  3. ZYPREXA [Concomitant]
     Dates: start: 20040101

REACTIONS (2)
  - NEUROPATHY PERIPHERAL [None]
  - TYPE 2 DIABETES MELLITUS [None]
